FAERS Safety Report 14804618 (Version 1)
Quarter: 2018Q2

REPORT INFORMATION
  Report Type: Spontaneous
  Country: US (occurrence: US)
  Receive Date: 20180425
  Receipt Date: 20180425
  Transmission Date: 20180711
  Serious: No
  Sender: FDA-Public Use
  Company Number: US-BAYER-2018-077916

PATIENT
  Age: 75 Year
  Sex: Female
  Weight: 76.19 kg

DRUGS (1)
  1. MIRALAX [Suspect]
     Active Substance: POLYETHYLENE GLYCOL 3350
     Dosage: 238 G, UNK (64 OZ OF GATORADE DOSE)
     Route: 048
     Dates: start: 2018

REACTIONS (5)
  - Off label use [Unknown]
  - Incorrect dose administered [None]
  - Wrong technique in product usage process [None]
  - Product use in unapproved indication [Unknown]
  - Product prescribing issue [None]
